FAERS Safety Report 25440870 (Version 1)
Quarter: 2025Q2

REPORT INFORMATION
  Report Type: Spontaneous
  Country: US (occurrence: US)
  Receive Date: 20250616
  Receipt Date: 20250616
  Transmission Date: 20250716
  Serious: No
  Sender: TORRENT PHARMA INC.
  Company Number: US-TORRENT-00014360

PATIENT
  Sex: Male

DRUGS (1)
  1. VENXXIVA [Suspect]
     Active Substance: TIOPRONIN
     Indication: Cystinuria
     Dosage: TAKING ONLY 1 TAB. DAILY SINCE RECEIVING THE PRESCRIPTION
     Route: 065
     Dates: start: 20250430

REACTIONS (2)
  - Product administration error [Unknown]
  - Negative thoughts [Not Recovered/Not Resolved]

NARRATIVE: CASE EVENT DATE: 20250606
